FAERS Safety Report 22689712 (Version 10)
Quarter: 2024Q3

REPORT INFORMATION
  Report Type: Report from Study
  Country: TR (occurrence: TR)
  Receive Date: 20230711
  Receipt Date: 20240826
  Transmission Date: 20241017
  Serious: Yes (Life-Threatening, Hospitalization)
  Sender: JOHNSON AND JOHNSON
  Company Number: TR-BRISTOL-MYERS SQUIBB COMPANY-2023-095261

PATIENT
  Age: 64 Year
  Sex: Male
  Weight: 65 kg

DRUGS (17)
  1. DARATUMUMAB [Suspect]
     Active Substance: DARATUMUMAB
     Indication: Plasma cell myeloma refractory
     Route: 058
     Dates: start: 20230613, end: 20230613
  2. POMALIDOMIDE [Suspect]
     Active Substance: POMALIDOMIDE
     Indication: Plasma cell myeloma refractory
     Route: 048
     Dates: start: 20230613, end: 20230619
  3. DEXAMETHASONE [Suspect]
     Active Substance: DEXAMETHASONE
     Indication: Plasma cell myeloma refractory
     Route: 048
     Dates: start: 20230627, end: 20230627
  4. POTASSIUM CHLORIDE [Concomitant]
     Active Substance: POTASSIUM CHLORIDE
     Indication: Prophylaxis
     Dosage: 7.5%
     Route: 042
     Dates: start: 20230706
  5. ALBUMIN HUMAN [Concomitant]
     Active Substance: ALBUMIN HUMAN
     Indication: Neutrophil count decreased
     Dosage: 20%
     Route: 042
     Dates: start: 20230703
  6. PANTOPRAZOLE [Concomitant]
     Active Substance: PANTOPRAZOLE
     Indication: Candida pneumonia
     Dosage: ONCE
     Route: 041
     Dates: start: 20230630
  7. METHYLPREDNISOLONE [Concomitant]
     Active Substance: METHYLPREDNISOLONE
     Indication: Prophylaxis
     Route: 041
     Dates: start: 20230630, end: 20230707
  8. ACETAMINOPHEN [Concomitant]
     Active Substance: ACETAMINOPHEN
     Indication: Prophylaxis
     Dosage: 10 MG/ML ONCE
     Route: 041
     Dates: start: 20230630
  9. GRANISETRON [Concomitant]
     Active Substance: GRANISETRON
     Indication: Candida pneumonia
     Dosage: 3 MG/ML ONCE
     Route: 041
     Dates: start: 20230630
  10. DEXKETOPROFEN [Concomitant]
     Active Substance: DEXKETOPROFEN
     Indication: Prophylaxis
     Route: 042
     Dates: start: 20230630
  11. CITALOPRAM [Concomitant]
     Active Substance: CITALOPRAM\CITALOPRAM HYDROBROMIDE
     Indication: Anxiety
     Route: 048
     Dates: start: 20230630
  12. ACETYLCYSTEINE [Concomitant]
     Active Substance: ACETYLCYSTEINE
     Indication: Prophylaxis
     Route: 041
     Dates: start: 20230630, end: 20230707
  13. ESOMEPRAZOLE [Concomitant]
     Active Substance: ESOMEPRAZOLE
     Indication: Prophylaxis
     Route: 041
     Dates: start: 20230630, end: 20230707
  14. FLUCONAZOLE [Concomitant]
     Active Substance: FLUCONAZOLE
     Indication: Prophylaxis
     Route: 048
     Dates: start: 20230703, end: 20230706
  15. MAGNESIUM SULFATE [Concomitant]
     Active Substance: MAGNESIUM SULFATE\MAGNESIUM SULFATE HEPTAHYDRATE
     Indication: Prophylaxis
     Dosage: 15%
     Route: 042
     Dates: start: 20230630, end: 20230706
  16. NIFEDIPINE [Concomitant]
     Active Substance: NIFEDIPINE
     Indication: Prophylaxis
     Route: 048
     Dates: start: 20230702, end: 20230705
  17. NIFEDIPINE [Concomitant]
     Active Substance: NIFEDIPINE
     Route: 048
     Dates: start: 20230702, end: 20230818

REACTIONS (1)
  - Candida pneumonia [Recovered/Resolved]

NARRATIVE: CASE EVENT DATE: 20230628
